FAERS Safety Report 11311645 (Version 1)
Quarter: 2015Q3

REPORT INFORMATION
  Report Type: Spontaneous
  Country: US (occurrence: None)
  Receive Date: 20150723
  Receipt Date: 20150723
  Transmission Date: 20151125
  Serious: Yes (Death, Hospitalization, Other)
  Sender: FDA-Public Use
  Company Number: US-ZYDUS-008622

PATIENT
  Age: 68 Year
  Sex: Male

DRUGS (4)
  1. LITHIUM CARBONATE. [Concomitant]
     Active Substance: LITHIUM CARBONATE
  2. DIVALPROEX (DIVALPROEX) [Suspect]
     Active Substance: DIVALPROEX SODIUM
  3. HALOPERIDOL (HALOPERIDOL) (HALOPERIDOL) [Suspect]
     Active Substance: HALOPERIDOL
  4. OLANZAPINE (OLANZAPINE) [Suspect]
     Active Substance: OLANZAPINE

REACTIONS (7)
  - Catatonia [None]
  - Bone marrow failure [None]
  - Intestinal adenocarcinoma [None]
  - Disease recurrence [None]
  - Neuroleptic malignant syndrome [None]
  - Drug intolerance [None]
  - Stupor [None]
